FAERS Safety Report 18892006 (Version 1)
Quarter: 2021Q1

REPORT INFORMATION
  Report Type: Spontaneous
  Country: US (occurrence: US)
  Receive Date: 20210215
  Receipt Date: 20210215
  Transmission Date: 20210420
  Serious: Yes (Death, Other)
  Sender: FDA-Public Use
  Company Number: NVSC2021US034509

PATIENT
  Age: 25 Year
  Sex: Female
  Weight: 105.5 kg

DRUGS (1)
  1. KYMRIAH [Suspect]
     Active Substance: TISAGENLECLEUCEL
     Indication: ACUTE LYMPHOCYTIC LEUKAEMIA
     Dosage: UNK
     Route: 065
     Dates: start: 20200211

REACTIONS (6)
  - Death [Fatal]
  - Toxicity to various agents [Unknown]
  - Systemic toxicity [Unknown]
  - Pyrexia [Unknown]
  - Chills [Unknown]
  - Cytokine release syndrome [Unknown]

NARRATIVE: CASE EVENT DATE: 20201114
